FAERS Safety Report 4283523-8 (Version None)
Quarter: 2004Q1

REPORT INFORMATION
  Report Type: 
  Country: None (occurrence: None)
  Receive Date: 20040120
  Receipt Date: 20030205
  Transmission Date: 20041129
  Serious: Yes (Hospitalization)
  Sender: FDA-Public Use
  Company Number: NSADSS2003006443

PATIENT
  Age: 32 Year
  Sex: Female
  Weight: 81.6475 kg

DRUGS (4)
  1. COPPER T MODEL TCU 380A [Suspect]
     Indication: INTRA-UTERINE CONTRACEPTIVE DEVICE INSERTION
     Dosage: INTRAUTERINE
     Route: 015
     Dates: start: 20010920, end: 20030101
  2. PROZAC [Concomitant]
  3. PRENATAL ( ) PRENATAL [Concomitant]
  4. CALCIUM ( ) CALCIUM [Concomitant]

REACTIONS (1)
  - IUCD COMPLICATION [None]
